FAERS Safety Report 4496323-0 (Version None)
Quarter: 2004Q4

REPORT INFORMATION
  Report Type: 
  Country: None (occurrence: None)
  Receive Date: 20041104
  Receipt Date: 20041020
  Transmission Date: 20050328
  Serious: Yes (Hospitalization)
  Sender: FDA-Public Use
  Company Number: 2004-00447

PATIENT
  Age: 71 Year
  Sex: Male

DRUGS (3)
  1. IMMUCYST         (BCG - IT(CONNAGUGHT) [Suspect]
     Indication: BLADDER CANCER
     Dosage: (81.0 MG); I.VES., BLADDER
     Route: 043
     Dates: start: 20030506, end: 20030902
  2. OFLOCET [Concomitant]
  3. PLACEBO OFLOCET [Concomitant]

REACTIONS (7)
  - GLOMERULONEPHRITIS PROLIFERATIVE [None]
  - HAEMODIALYSIS [None]
  - HENOCH-SCHONLEIN PURPURA [None]
  - RENAL FAILURE [None]
  - RENAL TUBULAR DISORDER [None]
  - SKIN NECROSIS [None]
  - SUPERINFECTION [None]
